FAERS Safety Report 4470556-1 (Version None)
Quarter: 2004Q4

REPORT INFORMATION
  Report Type: 
  Country: None (occurrence: None)
  Receive Date: 20041011
  Receipt Date: 20040930
  Transmission Date: 20050328
  Serious: Yes (Hospitalization)
  Sender: FDA-Public Use
  Company Number: US-JNJFOC-20041000906

PATIENT
  Sex: Female
  Weight: 55.2 kg

DRUGS (3)
  1. REMICADE [Suspect]
     Dosage: TWO INFUSIONS
     Route: 042
  2. 6MP [Concomitant]
  3. PREDNISONE [Concomitant]

REACTIONS (3)
  - DRUG EXPOSURE DURING PREGNANCY [None]
  - HOSPITALISATION [None]
  - PREGNANCY [None]
